FAERS Safety Report 5863987-6 (Version None)
Quarter: 2008Q3

REPORT INFORMATION
  Report Type: 
  Country: None (occurrence: None)
  Receive Date: 20080829
  Receipt Date: 20080825
  Transmission Date: 20090109
  Serious: Yes (Other)
  Sender: FDA-Public Use
  Company Number: US-BAYER-200823260NA

PATIENT
  Age: 70 Year
  Sex: Female

DRUGS (8)
  1. FLUDARA [Suspect]
     Indication: CHRONIC LYMPHOCYTIC LEUKAEMIA
     Dosage: TOTAL DAILY DOSE: 25 MG/M2
     Route: 042
     Dates: start: 20071001, end: 20080307
  2. ATACAND [Concomitant]
  3. LIPITOR [Concomitant]
  4. WELLBUTRIN [Concomitant]
  5. DIAZIDE [Concomitant]
  6. ADVAIR DISKUS 100/50 [Concomitant]
  7. ALBUTEROL [Concomitant]
  8. AROMIDEX [Concomitant]

REACTIONS (4)
  - ASTHENIA [None]
  - BLINDNESS [None]
  - NEUROPATHY PERIPHERAL [None]
  - PYREXIA [None]
